FAERS Safety Report 8670192 (Version 3)
Quarter: 2013Q3

REPORT INFORMATION
  Report Type: Report from Study
  Country: RU (occurrence: RU)
  Receive Date: 20120718
  Receipt Date: 20130906
  Transmission Date: 20140515
  Serious: Yes (Hospitalization)
  Sender: FDA-Public Use
  Company Number: RU-ROCHE-1088324

PATIENT
  Age: 29 Year
  Sex: Male
  Weight: 67.2 kg

DRUGS (3)
  1. BLINDED ALISPORIVIR [Suspect]
     Indication: HEPATITIS C
     Dosage: LAST DOSE RECEIVED ON : 08/APR/2012
     Route: 048
     Dates: start: 20120224
  2. PEG-INTERFERON ALFA 2A [Suspect]
     Indication: HEPATITIS C
     Dosage: LAST DOSE RECEIVED ON : 29/JUN/2012
     Route: 065
     Dates: start: 20120224, end: 20120702
  3. RIBAVIRIN [Suspect]
     Indication: HEPATITIS C
     Dosage: DOSE: 200 MG IN MORNING AND 400 MG IN EVENING, LAST DOSE RECEIVED ON: 02/JUL/2012
     Route: 065
     Dates: start: 20120224, end: 20120702

REACTIONS (1)
  - Deep vein thrombosis [Not Recovered/Not Resolved]
